FAERS Safety Report 23800430 (Version 1)
Quarter: 2024Q2

REPORT INFORMATION
  Report Type: Spontaneous
  Country: US (occurrence: US)
  Receive Date: 20240430
  Receipt Date: 20240430
  Transmission Date: 20240715
  Serious: No
  Sender: FDA-Public Use
  Company Number: US-BIOGEN-2021BI01012549

PATIENT
  Sex: Female

DRUGS (13)
  1. TYSABRI [Suspect]
     Active Substance: NATALIZUMAB
     Indication: Multiple sclerosis
     Route: 050
     Dates: start: 20110216
  2. WELLBUTRIN [Concomitant]
     Active Substance: BUPROPION HYDROCHLORIDE
     Route: 050
  3. MYRBETRIQ [Concomitant]
     Active Substance: MIRABEGRON
     Route: 050
  4. BOTOX [Concomitant]
     Active Substance: ONABOTULINUMTOXINA
     Route: 050
  5. LEXAPRO [Concomitant]
     Active Substance: ESCITALOPRAM OXALATE
     Route: 050
  6. OMEPRAZOLE [Concomitant]
     Active Substance: OMEPRAZOLE
     Route: 050
  7. XANAX [Concomitant]
     Active Substance: ALPRAZOLAM
     Route: 050
  8. KEPPRA [Concomitant]
     Active Substance: LEVETIRACETAM
     Route: 050
  9. ASPIRIN [Concomitant]
     Active Substance: ASPIRIN
     Route: 050
  10. VITAMIN D [Concomitant]
     Active Substance: VITAMIN D NOS
     Route: 050
  11. MELATONIN [Concomitant]
     Active Substance: MELATONIN
     Route: 050
  12. MECLIZINE [Concomitant]
     Active Substance: MECLIZINE HYDROCHLORIDE
     Route: 050
  13. METOPROLOL [Concomitant]
     Active Substance: METOPROLOL
     Route: 050

REACTIONS (3)
  - Therapeutic product effect decreased [Unknown]
  - Fracture [Unknown]
  - Fall [Recovered/Resolved]
